FAERS Safety Report 7555949-8 (Version None)
Quarter: 2011Q2

REPORT INFORMATION
  Report Type: 
  Country: None (occurrence: None)
  Receive Date: 20110618
  Receipt Date: 20110119
  Transmission Date: 20111010
  Serious: Yes (Hospitalization)
  Sender: FDA-Public Use
  Company Number: US-BAYER-200938522NA

PATIENT
  Age: 29 Year
  Sex: Female
  Weight: 83.9 kg

DRUGS (11)
  1. CIPROFLOXACIN HCL [Concomitant]
     Dosage: 500 MG, BID
     Dates: start: 20070827
  2. METFORMIN HCL [Concomitant]
  3. BENEFIBER [Concomitant]
     Dosage: UNK
     Dates: start: 20070827
  4. XANAX [Concomitant]
     Indication: ANXIETY
     Dosage: 0.5 MG, BID
     Dates: start: 20051101
  5. VYTORIN [Concomitant]
  6. GLUCOPHAGE [Concomitant]
     Dosage: UNK
     Dates: start: 20070901
  7. NEXIUM [Concomitant]
     Indication: GASTROOESOPHAGEAL REFLUX DISEASE
     Dosage: UNK
     Dates: start: 20071001
  8. YASMIN [Suspect]
     Indication: CONTRACEPTION
     Dosage: UNK UNK, QD
     Route: 048
     Dates: start: 20051101, end: 20080701
  9. VITAMIN E [Concomitant]
     Dosage: UNK UNK, QD
  10. ZOLOFT [Concomitant]
     Dosage: 100 UNK, UNK
  11. FASTIN [Concomitant]
     Dosage: UNK
     Dates: start: 20070522, end: 20070827

REACTIONS (3)
  - CHOLELITHIASIS [None]
  - CHOLECYSTITIS CHRONIC [None]
  - PAIN [None]
